FAERS Safety Report 7374790-2 (Version None)
Quarter: 2011Q1

REPORT INFORMATION
  Report Type: 
  Country: None (occurrence: None)
  Receive Date: 20110325
  Receipt Date: 20101203
  Transmission Date: 20110831
  Serious: No
  Sender: FDA-Public Use
  Company Number: US-MYLANLABS-2010S1020941

PATIENT
  Sex: Female

DRUGS (15)
  1. TAGAMET [Concomitant]
  2. TOPAMAX [Concomitant]
  3. ASPIRIN [Concomitant]
  4. FENTANYL-100 [Suspect]
     Indication: BACK PAIN
     Dosage: Q 48 HOURS
     Route: 062
     Dates: start: 20100101
  5. FENTANYL-100 [Suspect]
     Dosage: Q 48 HOURS
     Route: 062
     Dates: start: 20100101
  6. FENTANYL-100 [Suspect]
     Dosage: Q 72HOURS
     Route: 062
     Dates: start: 20080101
  7. LISINOPRIL [Concomitant]
  8. SYNTHROID [Concomitant]
  9. TETRACYCLINE [Concomitant]
  10. CYCLOSPORINE [Concomitant]
  11. LOPID [Concomitant]
  12. CRESTOR [Concomitant]
  13. GLUCOVANCE [Concomitant]
  14. CRANBERRY [Concomitant]
  15. VITAMIN TAB [Concomitant]

REACTIONS (7)
  - NAUSEA [None]
  - SUICIDAL IDEATION [None]
  - PAIN [None]
  - FORMICATION [None]
  - DRUG EFFECT DECREASED [None]
  - HOT FLUSH [None]
  - IRRITABILITY [None]
